FAERS Safety Report 6769568-4 (Version None)
Quarter: 2010Q2

REPORT INFORMATION
  Report Type: 
  Country: None (occurrence: None)
  Receive Date: 20100615
  Receipt Date: 20100605
  Transmission Date: 20101027
  Serious: Yes (Hospitalization)
  Sender: FDA-Public Use
  Company Number: PHHY2010BR36623

PATIENT
  Sex: Female

DRUGS (4)
  1. FORASEQ [Suspect]
     Indication: DYSPNOEA
     Dosage: 1 DF, BID
  2. IMIPRAMINE HYDROCHLORIDE [Concomitant]
     Indication: PARKINSON'S DISEASE
     Dosage: 1 DF, QD
     Route: 048
  3. PROLOPA [Concomitant]
     Indication: PARKINSON'S DISEASE
     Dosage: 1 DF, QD
     Route: 048
  4. MANTIDAN [Concomitant]
     Indication: PARKINSON'S DISEASE
     Dosage: 1 DF, QD
     Route: 048

REACTIONS (4)
  - DYSPNOEA [None]
  - DYSURIA [None]
  - PNEUMONIA [None]
  - URINARY TRACT INFECTION [None]
